FAERS Safety Report 16481086 (Version 3)
Quarter: 2019Q3

REPORT INFORMATION
  Report Type: Spontaneous
  Country: US (occurrence: US)
  Receive Date: 20190626
  Receipt Date: 20190717
  Transmission Date: 20191004
  Serious: No
  Sender: FDA-Public Use
  Company Number: US-009507513-1906USA008594

PATIENT
  Sex: Female

DRUGS (1)
  1. NEXPLANON [Suspect]
     Active Substance: ETONOGESTREL
     Indication: CONTRACEPTION
     Dosage: DOSE: 1 ROD, FREQUENCY: INSERTED EVERY 3 YEARS
     Route: 059
     Dates: start: 20171027

REACTIONS (3)
  - Device deployment issue [Not Recovered/Not Resolved]
  - Foreign body [Not Recovered/Not Resolved]
  - Complication of device removal [Not Recovered/Not Resolved]
